FAERS Safety Report 19954760 (Version 1)
Quarter: 2021Q4

REPORT INFORMATION
  Report Type: Spontaneous
  Country: US (occurrence: US)
  Receive Date: 20211014
  Receipt Date: 20211014
  Transmission Date: 20220303
  Serious: Yes (Hospitalization)
  Sender: FDA-Public Use
  Company Number: US-ALKERMES INC.-ALK-2021-005275

PATIENT

DRUGS (4)
  1. VIVITROL [Suspect]
     Active Substance: NALTREXONE
     Indication: Drug use disorder
     Dosage: 380 MILLIGRAM, QMO
     Route: 030
  2. NALTREXONE [Suspect]
     Active Substance: NALTREXONE
     Indication: Drug use disorder
     Dosage: 25 MILLIGRAM, ONE TIME DOSE
     Route: 048
  3. NALTREXONE [Suspect]
     Active Substance: NALTREXONE
     Dosage: 6.25 MILLIGRAM, ONE TIME DOSE
     Route: 048
  4. BUPRENORPHINE [Concomitant]
     Active Substance: BUPRENORPHINE
     Indication: Withdrawal syndrome
     Dosage: UNK
     Route: 065

REACTIONS (1)
  - Aggression [Recovered/Resolved]
